FAERS Safety Report 4533538-7 (Version None)
Quarter: 2004Q4

REPORT INFORMATION
  Report Type: 
  Country: None (occurrence: None)
  Receive Date: 20041206
  Receipt Date: 20041004
  Transmission Date: 20050328
  Serious: Yes (Other)
  Sender: FDA-Public Use
  Company Number: USA041080059

PATIENT
  Sex: Female
  Weight: 58 kg

DRUGS (7)
  1. PROZAC [Suspect]
     Indication: DEPRESSION
     Dates: start: 20030401, end: 20030401
  2. CYMBALTA [Suspect]
     Indication: DEPRESSION
     Dosage: 30 MG DAY
     Dates: start: 20040927, end: 20041001
  3. XALATAN [Concomitant]
  4. KLONOPIN [Concomitant]
  5. FLEXERIL [Concomitant]
  6. ACETAMINOPHEN [Concomitant]
  7. IBUPROFEN [Concomitant]

REACTIONS (10)
  - ABNORMAL DREAMS [None]
  - CATARACT NUCLEAR [None]
  - DECREASED APPETITE [None]
  - FEELING ABNORMAL [None]
  - HYPERHIDROSIS [None]
  - LOSS OF CONSCIOUSNESS [None]
  - OPEN ANGLE GLAUCOMA [None]
  - POLLAKIURIA [None]
  - TREMOR [None]
  - WEIGHT DECREASED [None]
